FAERS Safety Report 13915709 (Version 1)
Quarter: 2017Q3

REPORT INFORMATION
  Report Type: Spontaneous
  Country: US (occurrence: None)
  Receive Date: 20170827
  Receipt Date: 20170827
  Transmission Date: 20171127
  Serious: No
  Sender: FDA-Public Use
  Company Number: None

PATIENT
  Sex: Female

DRUGS (7)
  1. D [Concomitant]
  2. MULTIVITAMIN [Concomitant]
     Active Substance: VITAMINS
  3. OCALIVA [Suspect]
     Active Substance: OBETICHOLIC ACID
     Indication: BILIARY CIRRHOSIS PRIMARY
     Route: 048
     Dates: start: 20170629
  4. TRAMADOL. [Concomitant]
     Active Substance: TRAMADOL
  5. AMOX/K CLAV [Concomitant]
     Active Substance: AMOXICILLIN\CLAVULANATE POTASSIUM
  6. A [Concomitant]
  7. URSODIOL. [Concomitant]
     Active Substance: URSODIOL

REACTIONS (2)
  - Drug dose omission [None]
  - Diarrhoea [None]

NARRATIVE: CASE EVENT DATE: 2017
